FAERS Safety Report 22863206 (Version 3)
Quarter: 2024Q1

REPORT INFORMATION
  Report Type: Spontaneous
  Country: US (occurrence: US)
  Receive Date: 20230824
  Receipt Date: 20240116
  Transmission Date: 20240410
  Serious: Yes (Hospitalization)
  Sender: FDA-Public Use
  Company Number: US-BoehringerIngelheim-2023-BI-257412

PATIENT
  Age: 70 Year
  Sex: Female

DRUGS (2)
  1. LINAGLIPTIN [Suspect]
     Active Substance: LINAGLIPTIN
  2. LINAGLIPTIN [Suspect]
     Active Substance: LINAGLIPTIN
     Indication: Product used for unknown indication

REACTIONS (3)
  - Illness [Unknown]
  - Fall [Unknown]
  - Mobility decreased [Not Recovered/Not Resolved]

NARRATIVE: CASE EVENT DATE: 20230801
